FAERS Safety Report 6687075 (Version 3)
Quarter: 2015Q1

REPORT INFORMATION
  Report Type: Report from Study
  Country: FR (occurrence: FR)
  Receive Date: 20080630
  Receipt Date: 20150206
  Transmission Date: 20150721
  Serious: Yes (Death, Hospitalization)
  Sender: FDA-Public Use
  Company Number: FR-PFIZER INC-2006063564

PATIENT
  Age: 82 Year
  Sex: Male
  Weight: 87 kg

DRUGS (4)
  1. ALLOPURINOL. [Concomitant]
     Active Substance: ALLOPURINOL
     Route: 048
  2. COVERSYL [Concomitant]
     Active Substance: PERINDOPRIL
     Route: 048
     Dates: start: 1986
  3. SUNITINIB MALATE [Suspect]
     Active Substance: SUNITINIB MALATE
     Indication: HEPATOCELLULAR CARCINOMA
     Dosage: 50 MG, 1X/DAY, 4 WEEKS ON, 2 WEEKS OFF
     Route: 048
     Dates: start: 20060412, end: 20060509
  4. PARACETAMOL [Concomitant]
     Active Substance: ACETAMINOPHEN
     Route: 048
     Dates: start: 20060412, end: 200605

REACTIONS (8)
  - Asthenia [Fatal]
  - Thrombocytopenia [Fatal]
  - Rectal haemorrhage [Fatal]
  - Anaemia [Fatal]
  - Epistaxis [Not Recovered/Not Resolved]
  - Mouth haemorrhage [Fatal]
  - Petechiae [Not Recovered/Not Resolved]
  - Vomiting [Not Recovered/Not Resolved]

NARRATIVE: CASE EVENT DATE: 20060505
